FAERS Safety Report 8577949 (Version 3)
Quarter: 2013Q2

REPORT INFORMATION
  Report Type: Spontaneous
  Country: US (occurrence: US)
  Receive Date: 20120524
  Receipt Date: 20130607
  Transmission Date: 20140414
  Serious: No
  Sender: FDA-Public Use
  Company Number: US-PFIZER INC-2012121243

PATIENT
  Age: 86 Year
  Sex: Male

DRUGS (4)
  1. ACCUPRIL [Suspect]
     Dosage: UNK
  2. PENICILLIN G PROCAINE [Suspect]
     Dosage: UNK
  3. ZITHROMAX [Suspect]
     Dosage: UNK
  4. LEVAQUIN [Suspect]

REACTIONS (1)
  - Drug hypersensitivity [Unknown]
